APPROVED DRUG PRODUCT: MONTELUKAST SODIUM
Active Ingredient: MONTELUKAST SODIUM
Strength: EQ 10MG BASE
Dosage Form/Route: TABLET;ORAL
Application: A202843 | Product #001 | TE Code: AB
Applicant: HETERO LABS LTD UNIT V
Approved: Sep 10, 2014 | RLD: No | RS: No | Type: RX